FAERS Safety Report 14329433 (Version 1)
Quarter: 2017Q4

REPORT INFORMATION
  Report Type: Spontaneous
  Country: GB (occurrence: GB)
  Receive Date: 20171227
  Receipt Date: 20171227
  Transmission Date: 20180321
  Serious: Yes (Hospitalization)
  Sender: FDA-Public Use
  Company Number: GB-TEVA-2017-GB-836595

PATIENT
  Age: 62 Year
  Sex: Female
  Weight: 63 kg

DRUGS (2)
  1. ERYTHROMYCIN. [Concomitant]
     Active Substance: ERYTHROMYCIN
  2. TERBINAFINE. [Suspect]
     Active Substance: TERBINAFINE
     Indication: SKIN INFECTION
     Route: 048
     Dates: start: 20170821, end: 20170829

REACTIONS (5)
  - Headache [Recovered/Resolved]
  - Blood pressure increased [Recovered/Resolved]
  - Lymphadenopathy [Recovered/Resolved]
  - Body temperature increased [Recovered/Resolved]
  - Paraesthesia [Recovered/Resolved]

NARRATIVE: CASE EVENT DATE: 20170829
